FAERS Safety Report 19250961 (Version 1)
Quarter: 2021Q2

REPORT INFORMATION
  Report Type: Spontaneous
  Country: FR (occurrence: FR)
  Receive Date: 20210512
  Receipt Date: 20210512
  Transmission Date: 20210717
  Serious: Yes (Hospitalization)
  Sender: FDA-Public Use
  Company Number: FR-HBP-2021FR022040

PATIENT
  Age: 65 Year
  Sex: Female
  Weight: 41 kg

DRUGS (12)
  1. DOCETAXEL. [Suspect]
     Active Substance: DOCETAXEL
     Indication: SQUAMOUS CELL CARCINOMA
     Route: 041
     Dates: start: 20210330, end: 20210330
  2. NEBIVOLOL. [Concomitant]
     Active Substance: NEBIVOLOL
     Dosage: UNK, UNKNOWN
     Route: 065
  3. ACETYLSALICYLATE LYSINE [Concomitant]
     Active Substance: ASPIRIN DL-LYSINE
     Dosage: UNK, UNKNOWN
     Route: 065
  4. LEVOFOLINATE                       /06682101/ [Suspect]
     Active Substance: LEVOLEUCOVORIN
     Indication: SQUAMOUS CELL CARCINOMA
     Route: 041
     Dates: start: 20210330, end: 20210330
  5. PARACETAMOL [Concomitant]
     Active Substance: ACETAMINOPHEN
     Dosage: UNK, UNKNOWN
     Route: 065
  6. SOLU?MEDROL [Suspect]
     Active Substance: METHYLPREDNISOLONE SODIUM SUCCINATE
     Indication: SQUAMOUS CELL CARCINOMA
     Dosage: 80 MILLIGRAM, QD
     Route: 041
     Dates: start: 20210330, end: 20210330
  7. CISPLATINE [Suspect]
     Active Substance: CISPLATIN
     Indication: SQUAMOUS CELL CARCINOMA
     Route: 041
     Dates: start: 20210330, end: 20210330
  8. MOVICOL [Concomitant]
     Active Substance: POLYETHYLENE GLYCOL 3350\POTASSIUM CHLORIDE\SODIUM BICARBONATE\SODIUM CHLORIDE
     Dosage: UNK, UNKNOWN
     Route: 065
  9. OXYCODONE [Concomitant]
     Active Substance: OXYCODONE
     Dosage: UNK, UNKNOWN
     Route: 065
  10. FLUOROURACILE [Suspect]
     Active Substance: FLUOROURACIL
     Indication: SQUAMOUS CELL CARCINOMA
     Route: 041
     Dates: start: 20210330, end: 20210330
  11. AKYNZEO [Suspect]
     Active Substance: NETUPITANT\PALONOSETRON HYDROCHLORIDE
     Indication: SQUAMOUS CELL CARCINOMA
     Route: 048
     Dates: start: 20210330, end: 20210330
  12. VALSARTAN. [Concomitant]
     Active Substance: VALSARTAN
     Dosage: UNK, UNKNOWN
     Route: 065

REACTIONS (2)
  - Renal tubular disorder [Not Recovered/Not Resolved]
  - Off label use [Unknown]

NARRATIVE: CASE EVENT DATE: 20210330
